FAERS Safety Report 22343951 (Version 1)
Quarter: 2023Q2

REPORT INFORMATION
  Report Type: Spontaneous
  Country: US (occurrence: US)
  Receive Date: 20230519
  Receipt Date: 20230519
  Transmission Date: 20230722
  Serious: Yes (Other)
  Sender: FDA-Public Use
  Company Number: US-TAKEDA-2023TUS048935

PATIENT
  Sex: Female
  Weight: 93 kg

DRUGS (1)
  1. TRINTELLIX [Suspect]
     Active Substance: VORTIOXETINE HYDROBROMIDE
     Indication: Major depression
     Dosage: 20 MILLIGRAM, QD
     Route: 065
     Dates: start: 201812

REACTIONS (4)
  - Hyperthyroidism [Unknown]
  - Thyroid stimulating hormone deficiency [Unknown]
  - Asthenia [Unknown]
  - Feeling abnormal [Unknown]
